FAERS Safety Report 13614269 (Version 1)
Quarter: 2017Q2

REPORT INFORMATION
  Report Type: Spontaneous
  Country: US (occurrence: US)
  Receive Date: 20170606
  Receipt Date: 20170606
  Transmission Date: 20170830
  Serious: No
  Sender: FDA-Public Use
  Company Number: US-ELI_LILLY_AND_COMPANY-US201705005312

PATIENT
  Age: 48 Year
  Sex: Male

DRUGS (3)
  1. LANTUS [Concomitant]
     Active Substance: INSULIN GLARGINE
     Indication: TYPE 2 DIABETES MELLITUS
     Dosage: 40 U, BID
     Dates: start: 20170510
  2. BABY ASPIRIN [Concomitant]
     Active Substance: ASPIRIN
     Indication: TYPE 2 DIABETES MELLITUS
     Dosage: UNK
     Dates: start: 20170510
  3. HUMALOG [Suspect]
     Active Substance: INSULIN LISPRO
     Indication: TYPE 2 DIABETES MELLITUS
     Dosage: 20 U, TID
     Route: 058
     Dates: start: 20170510

REACTIONS (2)
  - Blood glucose increased [Recovering/Resolving]
  - Fatigue [Recovering/Resolving]

NARRATIVE: CASE EVENT DATE: 20170510
